FAERS Safety Report 8493058-4 (Version None)
Quarter: 2012Q2

REPORT INFORMATION
  Report Type: 
  Country: None (occurrence: None)
  Receive Date: 20120629
  Receipt Date: 20120629
  Transmission Date: 20120825
  Serious: No
  Sender: FDA-Public Use
  Company Number: None

PATIENT
  Sex: Female
  Weight: 85 kg

DRUGS (2)
  1. PACLITAXEL (TAXOL) [Suspect]
     Dosage: 325 MG
  2. CARBOPLATIN [Suspect]
     Dosage: 865 MG

REACTIONS (5)
  - RESTLESSNESS [None]
  - CONFUSIONAL STATE [None]
  - FLUSHING [None]
  - HYPERSENSITIVITY [None]
  - BACK PAIN [None]
